FAERS Safety Report 9083475 (Version 3)
Quarter: 2013Q3

REPORT INFORMATION
  Report Type: Spontaneous
  Country: US (occurrence: US)
  Receive Date: 20130130
  Receipt Date: 20130801
  Transmission Date: 20140515
  Serious: Yes (Death)
  Sender: FDA-Public Use
  Company Number: US-ALEXION-A201300086

PATIENT
  Age: 14 Year
  Sex: Female
  Weight: 34 kg

DRUGS (5)
  1. SOLIRIS 300MG [Suspect]
     Indication: HAEMOLYTIC URAEMIC SYNDROME
     Dosage: 900 MG, UNK
     Route: 042
     Dates: start: 20121204, end: 20121211
  2. SOLIRIS 300MG [Suspect]
     Indication: AUTOIMMUNE DISORDER
  3. LEVOTHYROXINE [Concomitant]
     Indication: HYPOTHYROIDISM
  4. INSULIN [Concomitant]
     Indication: TYPE 1 DIABETES MELLITUS
  5. PREDNISONE [Concomitant]
     Indication: MYASTHENIA GRAVIS

REACTIONS (3)
  - Haemolytic uraemic syndrome [Fatal]
  - Disease progression [Fatal]
  - Multi-organ failure [Fatal]
